FAERS Safety Report 8399024-1 (Version None)
Quarter: 2012Q2

REPORT INFORMATION
  Report Type: 
  Country: None (occurrence: None)
  Receive Date: 20120531
  Receipt Date: 20120521
  Transmission Date: 20120825
  Serious: Yes (Other)
  Sender: FDA-Public Use
  Company Number: JP-ELI_LILLY_AND_COMPANY-JP201204006162

PATIENT
  Age: 69 Year
  Sex: Male

DRUGS (2)
  1. BEVACIZUMAB [Concomitant]
     Indication: LUNG ADENOCARCINOMA RECURRENT
  2. ALIMTA [Suspect]
     Indication: LUNG ADENOCARCINOMA RECURRENT
     Route: 042

REACTIONS (1)
  - ACUTE MYELOID LEUKAEMIA [None]
